FAERS Safety Report 13831874 (Version 1)
Quarter: 2017Q3

REPORT INFORMATION
  Report Type: Spontaneous
  Country: US (occurrence: US)
  Receive Date: 20170803
  Receipt Date: 20170803
  Transmission Date: 20171127
  Serious: No
  Sender: FDA-Public Use
  Company Number: US-ROCHE-539305

PATIENT
  Sex: Female
  Weight: 62.3 kg

DRUGS (2)
  1. BONIVA [Suspect]
     Active Substance: IBANDRONATE SODIUM
     Indication: OSTEOPENIA
     Dosage: OTHER INDICATION: OSTEOPOROSIS.
     Route: 048
  2. BONIVA [Suspect]
     Active Substance: IBANDRONATE SODIUM
     Route: 048

REACTIONS (1)
  - Influenza [Recovering/Resolving]
